FAERS Safety Report 7312813-7 (Version None)
Quarter: 2011Q1

REPORT INFORMATION
  Report Type: 
  Country: None (occurrence: None)
  Receive Date: 20110224
  Receipt Date: 20100302
  Transmission Date: 20110831
  Serious: No
  Sender: FDA-Public Use
  Company Number: US-MYLANLABS-2010S1001952

PATIENT
  Sex: Female
  Weight: 77.11 kg

DRUGS (11)
  1. METOPROLOL TARTRATE [Suspect]
     Indication: BLOOD PRESSURE INCREASED
     Route: 048
  2. METOPROLOL TARTRATE [Suspect]
     Indication: ESSENTIAL HYPERTENSION
     Route: 048
  3. LISINOPRIL [Suspect]
     Indication: BLOOD PRESSURE INCREASED
     Route: 048
     Dates: start: 20091001, end: 20091001
  4. LISINOPRIL [Suspect]
     Route: 048
     Dates: start: 20100101
  5. LISINOPRIL [Suspect]
     Route: 048
     Dates: start: 20100101
  6. MULTIVITAMIN [Concomitant]
  7. LISINOPRIL [Suspect]
     Route: 048
  8. ALEVE [Concomitant]
  9. LISINOPRIL [Suspect]
     Indication: ESSENTIAL HYPERTENSION
     Route: 048
     Dates: start: 20091001, end: 20091001
  10. XANAX [Concomitant]
     Indication: ANXIETY
     Dosage: PRN
  11. LISINOPRIL [Suspect]
     Route: 048

REACTIONS (16)
  - PERIPHERAL COLDNESS [None]
  - LOSS OF LIBIDO [None]
  - DRUG INTERACTION [None]
  - DRUG INEFFECTIVE [None]
  - HEART RATE DECREASED [None]
  - HEADACHE [None]
  - DEHYDRATION [None]
  - PALPITATIONS [None]
  - VITREOUS FLOATERS [None]
  - ANTINUCLEAR ANTIBODY POSITIVE [None]
  - MICTURITION URGENCY [None]
  - BLOOD PRESSURE INCREASED [None]
  - HEART RATE INCREASED [None]
  - DISTURBANCE IN ATTENTION [None]
  - NERVOUSNESS [None]
  - ANXIETY [None]
